FAERS Safety Report 23210146 (Version 1)
Quarter: 2023Q4

REPORT INFORMATION
  Report Type: Spontaneous
  Country: NL (occurrence: NL)
  Receive Date: 20231121
  Receipt Date: 20231121
  Transmission Date: 20240110
  Serious: Yes (Other)
  Sender: FDA-Public Use
  Company Number: None

PATIENT
  Sex: Male

DRUGS (1)
  1. FINASTERIDE [Suspect]
     Active Substance: FINASTERIDE
     Indication: Alopecia
     Dates: start: 2023

REACTIONS (16)
  - Impaired quality of life [Unknown]
  - Product communication issue [Unknown]
  - Visual impairment [Unknown]
  - Vitreous floaters [Unknown]
  - Painful ejaculation [Unknown]
  - Depression [Unknown]
  - Derealisation [Unknown]
  - Libido decreased [Unknown]
  - Dysuria [Unknown]
  - Muscle atrophy [Unknown]
  - Suicidal ideation [Unknown]
  - Urine output increased [Unknown]
  - Fatigue [Unknown]
  - Anxiety disorder [Unknown]
  - Arthralgia [Unknown]
  - Depersonalisation/derealisation disorder [Unknown]
